FAERS Safety Report 8517792-2 (Version None)
Quarter: 2012Q3

REPORT INFORMATION
  Report Type: 
  Country: None (occurrence: None)
  Receive Date: 20120712
  Receipt Date: 20120712
  Transmission Date: 20120928
  Serious: Yes (Hospitalization, Other)
  Sender: FDA-Public Use
  Company Number: None

PATIENT
  Age: 75 Year
  Sex: Female

DRUGS (1)
  1. SODIUM HYPOCHLORITE [Suspect]
     Indication: STERILISATION
     Dosage: UNKNOWN BY DENTIST, ONCE
     Dates: start: 20120529, end: 20120529

REACTIONS (4)
  - NASAL DISCOMFORT [None]
  - BURNING SENSATION [None]
  - CONTUSION [None]
  - SWELLING FACE [None]
